FAERS Safety Report 9891424 (Version 2)
Quarter: 2014Q2

REPORT INFORMATION
  Report Type: Spontaneous
  Country: US (occurrence: US)
  Receive Date: 20140212
  Receipt Date: 20140522
  Transmission Date: 20141212
  Serious: No
  Sender: FDA-Public Use
  Company Number: US-PFIZER INC-2014039722

PATIENT
  Age: 46 Year
  Sex: Female
  Weight: 77.1 kg

DRUGS (3)
  1. ZIPRASIDONE MESILATE [Suspect]
     Indication: SCHIZOPHRENIA
     Dosage: 120 MG (40 MG X 3), 2X/DAY
     Dates: end: 20140204
  2. ZIPRASIDONE MESILATE [Suspect]
     Indication: SCHIZOAFFECTIVE DISORDER
  3. TRAZODONE [Concomitant]
     Indication: SLEEP DISORDER
     Dosage: 100 MG, DAILY

REACTIONS (5)
  - Malaise [Unknown]
  - Insomnia [Unknown]
  - Vomiting [Unknown]
  - Drug withdrawal syndrome [Unknown]
  - Confusional state [Unknown]
